FAERS Safety Report 19497863 (Version 1)
Quarter: 2021Q3

REPORT INFORMATION
  Report Type: Spontaneous
  Country: US (occurrence: US)
  Receive Date: 20210706
  Receipt Date: 20210706
  Transmission Date: 20211014
  Serious: No
  Sender: FDA-Public Use
  Company Number: US-ELI_LILLY_AND_COMPANY-US202106014120

PATIENT
  Age: 64 Year
  Sex: Female

DRUGS (5)
  1. BASAGLAR [Suspect]
     Active Substance: INSULIN GLARGINE
     Dosage: 66 U, DAILY (NIGHT)
     Route: 065
     Dates: start: 202106
  2. BASAGLAR [Suspect]
     Active Substance: INSULIN GLARGINE
     Indication: PRODUCT USED FOR UNKNOWN INDICATION
     Dosage: 66 U, DAILY (NIGHT)
     Route: 065
     Dates: start: 202106
  3. OMEPRAZOLE. [Concomitant]
     Active Substance: OMEPRAZOLE
     Indication: GASTRIC DISORDER
  4. BASAGLAR [Suspect]
     Active Substance: INSULIN GLARGINE
     Indication: PRODUCT USED FOR UNKNOWN INDICATION
     Dosage: 66 U, DAILY (NIGHT)
     Route: 065
     Dates: start: 202106
  5. BASAGLAR [Suspect]
     Active Substance: INSULIN GLARGINE
     Dosage: 66 U, DAILY (NIGHT)
     Route: 065
     Dates: start: 202106

REACTIONS (2)
  - Blood glucose abnormal [Unknown]
  - Product storage error [Unknown]

NARRATIVE: CASE EVENT DATE: 202106
